FAERS Safety Report 14578438 (Version 1)
Quarter: 2018Q1

REPORT INFORMATION
  Report Type: Spontaneous
  Country: US (occurrence: US)
  Receive Date: 20180227
  Receipt Date: 20180227
  Transmission Date: 20180509
  Serious: No
  Sender: FDA-Public Use
  Company Number: None

PATIENT
  Age: 29 Year
  Sex: Female
  Weight: 108.86 kg

DRUGS (4)
  1. ATIVAN [Concomitant]
     Active Substance: LORAZEPAM
  2. PARAGARD T 380A [Suspect]
     Active Substance: COPPER
     Dates: start: 20160218, end: 20180201
  3. WELLBUTRIN [Concomitant]
     Active Substance: BUPROPION HYDROCHLORIDE
  4. PROZAC [Concomitant]
     Active Substance: FLUOXETINE HYDROCHLORIDE

REACTIONS (10)
  - Seizure [None]
  - Dizziness [None]
  - Premenstrual syndrome [None]
  - Alopecia [None]
  - Crying [None]
  - Anxiety [None]
  - Quality of life decreased [None]
  - Impaired driving ability [None]
  - Menorrhagia [None]
  - Panic attack [None]

NARRATIVE: CASE EVENT DATE: 20160328
